FAERS Safety Report 6092258-0 (Version None)
Quarter: 2009Q1

REPORT INFORMATION
  Report Type: 
  Country: None (occurrence: None)
  Receive Date: 20090225
  Receipt Date: 20090220
  Transmission Date: 20090719
  Serious: Yes (Death)
  Sender: FDA-Public Use
  Company Number: A0770069A

PATIENT
  Sex: Male

DRUGS (1)
  1. SERETIDE [Suspect]
     Indication: EMPHYSEMA
     Route: 055
     Dates: start: 20090117, end: 20090131

REACTIONS (1)
  - CARDIAC FAILURE [None]
